FAERS Safety Report 9564108 (Version 2)
Quarter: 2014Q1

REPORT INFORMATION
  Report Type: Spontaneous
  Country: US (occurrence: US)
  Receive Date: 20130929
  Receipt Date: 20140106
  Transmission Date: 20141002
  Serious: No
  Sender: FDA-Public Use
  Company Number: US-009507513-1309USA009237

PATIENT
  Sex: Female

DRUGS (2)
  1. NEXPLANON [Suspect]
     Dosage: 68 MG/ ONE ROD EVERY THREE YEARS
     Route: 059
     Dates: start: 20130916, end: 20130916
  2. NEXPLANON [Suspect]
     Dosage: UNK
     Route: 059
     Dates: start: 20130916

REACTIONS (4)
  - Device difficult to use [Recovered/Resolved]
  - Device deployment issue [Unknown]
  - Device expulsion [Recovered/Resolved]
  - No adverse event [Unknown]
